FAERS Safety Report 17191058 (Version 1)
Quarter: 2019Q4

REPORT INFORMATION
  Report Type: Spontaneous
  Country: MY (occurrence: MY)
  Receive Date: 20191223
  Receipt Date: 20191223
  Transmission Date: 20200122
  Serious: Yes (Other)
  Sender: FDA-Public Use
  Company Number: MY-PFIZER INC-2019549099

PATIENT

DRUGS (1)
  1. CILASTATIN/IMIPENEM [Suspect]
     Active Substance: CILASTATIN SODIUM\IMIPENEM
     Indication: PATHOGEN RESISTANCE
     Dosage: 1 G, 3X/DAY (PER 8 HOURS)
     Route: 064

REACTIONS (2)
  - Maternal exposure during pregnancy [Unknown]
  - Foetal hypokinesia [Unknown]
